FAERS Safety Report 15689065 (Version 1)
Quarter: 2018Q4

REPORT INFORMATION
  Report Type: Spontaneous
  Country: US (occurrence: US)
  Receive Date: 20181121
  Receipt Date: 20181121
  Transmission Date: 20190205
  Serious: Yes (Life-Threatening, Disabling)
  Sender: FDA-Public Use
  Company Number: None

PATIENT
  Age: 72 Year
  Sex: Male
  Weight: 81.65 kg

DRUGS (9)
  1. IRON [Concomitant]
     Active Substance: IRON
  2. WHEY PROTEIN [Concomitant]
     Active Substance: WHEY
  3. VITAMIN E [Concomitant]
     Active Substance: .ALPHA.-TOCOPHEROL
  4. LORAZEPAM. [Suspect]
     Active Substance: LORAZEPAM
     Indication: INSOMNIA
     Dosage: ?          OTHER STRENGTH:1 MG   -  90 PILLS;?
     Route: 048
     Dates: start: 20070611
  5. ALFALFA [Concomitant]
     Active Substance: ALFALFA
  6. L-ARGENINE [Concomitant]
  7. MEN^S PRIME MULTI [Concomitant]
  8. LIQUID MINERALS [Concomitant]
  9. VITAMIN B COMPLEX [Concomitant]
     Active Substance: CYANOCOBALAMIN\DEXPANTHENOL\NIACINAMIDE\PYRIDOXINE HYDROCHLORIDE\RIBOFLAVIN 5^-PHOSPHATE SODIUM\THIAMINE HYDROCHLORIDE\VITAMIN B COMPLEX

REACTIONS (6)
  - Drug ineffective [None]
  - Asthenia [None]
  - Cardiac disorder [None]
  - Multiple organ dysfunction syndrome [None]
  - Balance disorder [None]
  - Urine flow decreased [None]

NARRATIVE: CASE EVENT DATE: 20070711
